FAERS Safety Report 6693752-1 (Version None)
Quarter: 2010Q2

REPORT INFORMATION
  Report Type: 
  Country: None (occurrence: None)
  Receive Date: 20100423
  Receipt Date: 20090916
  Transmission Date: 20101027
  Serious: No
  Sender: FDA-Public Use
  Company Number: A0807677A

PATIENT
  Age: 59 Year
  Sex: Female

DRUGS (9)
  1. DEXTROAMPHETAMINE [Suspect]
     Dosage: 5MG VARIABLE DOSE
     Route: 048
     Dates: start: 20090701
  2. WELLBUTRIN [Concomitant]
  3. PROZAC [Concomitant]
  4. DESYREL [Concomitant]
  5. LIPITOR [Concomitant]
  6. PRILOSEC [Concomitant]
  7. CALCIUM [Concomitant]
  8. MULTI-VITAMINS [Concomitant]
  9. RISPERIDONE [Concomitant]

REACTIONS (3)
  - FLUID RETENTION [None]
  - ILL-DEFINED DISORDER [None]
  - NASAL CONGESTION [None]
